FAERS Safety Report 25713999 (Version 1)
Quarter: 2025Q3

REPORT INFORMATION
  Report Type: Spontaneous
  Country: CA (occurrence: CA)
  Receive Date: 20250822
  Receipt Date: 20250822
  Transmission Date: 20251021
  Serious: Yes (Life-Threatening, Hospitalization, Disabling, Other)
  Sender: Haleon PLC
  Company Number: CA-HALEON-2254354

PATIENT
  Age: 65 Year
  Sex: Female
  Weight: 69 kg

DRUGS (219)
  1. TUMS ULTRA [Suspect]
     Active Substance: CALCIUM CARBONATE
     Indication: Product used for unknown indication
  2. TUMS ULTRA [Suspect]
     Active Substance: CALCIUM CARBONATE
  3. TUMS ULTRA [Suspect]
     Active Substance: CALCIUM CARBONATE
  4. TUMS ULTRA [Suspect]
     Active Substance: CALCIUM CARBONATE
  5. TUMS ULTRA [Suspect]
     Active Substance: CALCIUM CARBONATE
  6. TUMS ULTRA [Suspect]
     Active Substance: CALCIUM CARBONATE
  7. TUMS ULTRA [Suspect]
     Active Substance: CALCIUM CARBONATE
  8. TUMS ULTRA [Suspect]
     Active Substance: CALCIUM CARBONATE
  9. TUMS ULTRA [Suspect]
     Active Substance: CALCIUM CARBONATE
  10. ALISKIREN HEMIFUMARATE [Suspect]
     Active Substance: ALISKIREN HEMIFUMARATE
     Indication: Off label use
  11. ALISKIREN HEMIFUMARATE [Suspect]
     Active Substance: ALISKIREN HEMIFUMARATE
     Indication: Microalbuminuria
  12. ALISKIREN HEMIFUMARATE [Suspect]
     Active Substance: ALISKIREN HEMIFUMARATE
     Indication: Hypertension
  13. ALISKIREN HEMIFUMARATE [Suspect]
     Active Substance: ALISKIREN HEMIFUMARATE
  14. ALISKIREN HEMIFUMARATE [Suspect]
     Active Substance: ALISKIREN HEMIFUMARATE
  15. ALISKIREN HEMIFUMARATE [Suspect]
     Active Substance: ALISKIREN HEMIFUMARATE
  16. ALISKIREN HEMIFUMARATE [Suspect]
     Active Substance: ALISKIREN HEMIFUMARATE
  17. ALISKIREN HEMIFUMARATE [Suspect]
     Active Substance: ALISKIREN HEMIFUMARATE
  18. ALISKIREN HEMIFUMARATE [Suspect]
     Active Substance: ALISKIREN HEMIFUMARATE
  19. RAMIPRIL [Suspect]
     Active Substance: RAMIPRIL
     Indication: Product used for unknown indication
  20. RAMIPRIL [Suspect]
     Active Substance: RAMIPRIL
  21. RAMIPRIL [Suspect]
     Active Substance: RAMIPRIL
  22. RAMIPRIL [Suspect]
     Active Substance: RAMIPRIL
  23. LEVOTHYROXINE SODIUM [Suspect]
     Active Substance: LEVOTHYROXINE SODIUM
     Indication: Product used for unknown indication
  24. LISINOPRIL [Suspect]
     Active Substance: LISINOPRIL
     Indication: Hypertension
     Route: 048
  25. LISINOPRIL [Suspect]
     Active Substance: LISINOPRIL
     Route: 048
  26. LISINOPRIL [Suspect]
     Active Substance: LISINOPRIL
     Route: 048
  27. LISINOPRIL [Suspect]
     Active Substance: LISINOPRIL
     Route: 048
  28. LISINOPRIL [Suspect]
     Active Substance: LISINOPRIL
  29. NAPROXEN [Suspect]
     Active Substance: NAPROXEN
     Indication: Product used for unknown indication
  30. NAPROXEN [Suspect]
     Active Substance: NAPROXEN
  31. NAPROXEN [Suspect]
     Active Substance: NAPROXEN
  32. NAPROXEN [Suspect]
     Active Substance: NAPROXEN
  33. PREDNISONE [Suspect]
     Active Substance: PREDNISONE
     Indication: Product used for unknown indication
  34. PREDNISONE [Suspect]
     Active Substance: PREDNISONE
  35. PREDNISONE [Suspect]
     Active Substance: PREDNISONE
  36. MORPHINE [Suspect]
     Active Substance: MORPHINE
     Indication: Product used for unknown indication
  37. ASPIRIN [Suspect]
     Active Substance: ASPIRIN
     Indication: Product used for unknown indication
     Route: 065
  38. ASPIRIN [Suspect]
     Active Substance: ASPIRIN
     Route: 065
  39. ASPIRIN [Suspect]
     Active Substance: ASPIRIN
     Route: 065
  40. ASPIRIN [Suspect]
     Active Substance: ASPIRIN
     Route: 065
  41. ASPIRIN [Suspect]
     Active Substance: ASPIRIN
     Route: 065
  42. ACITRETIN [Concomitant]
     Active Substance: ACITRETIN
     Indication: Product used for unknown indication
     Route: 065
  43. ALTACE [Suspect]
     Active Substance: RAMIPRIL
     Indication: Product used for unknown indication
     Route: 048
  44. ALTACE [Suspect]
     Active Substance: RAMIPRIL
  45. AMEVIVE [Concomitant]
     Active Substance: ALEFACEPT
     Indication: Product used for unknown indication
     Route: 030
  46. AMLODIPINE BESYLATE [Suspect]
     Active Substance: AMLODIPINE BESYLATE
     Indication: Product used for unknown indication
     Route: 048
  47. AMLODIPINE BESYLATE [Suspect]
     Active Substance: AMLODIPINE BESYLATE
     Route: 065
  48. AMLODIPINE BESYLATE [Suspect]
     Active Substance: AMLODIPINE BESYLATE
     Route: 048
  49. AMLODIPINE BESYLATE [Suspect]
     Active Substance: AMLODIPINE BESYLATE
     Route: 048
  50. AMLODIPINE BESYLATE [Suspect]
     Active Substance: AMLODIPINE BESYLATE
     Route: 048
  51. AMLODIPINE BESYLATE [Suspect]
     Active Substance: AMLODIPINE BESYLATE
     Route: 048
  52. AMLODIPINE BESYLATE [Suspect]
     Active Substance: AMLODIPINE BESYLATE
     Route: 048
  53. AMLODIPINE BESYLATE [Suspect]
     Active Substance: AMLODIPINE BESYLATE
     Route: 048
  54. AMLODIPINE BESYLATE [Suspect]
     Active Substance: AMLODIPINE BESYLATE
     Route: 048
  55. AMLODIPINE BESYLATE [Suspect]
     Active Substance: AMLODIPINE BESYLATE
     Route: 048
  56. AMLODIPINE BESYLATE [Suspect]
     Active Substance: AMLODIPINE BESYLATE
  57. PANTOPRAZOLE SODIUM ANHYDROUS [Concomitant]
     Active Substance: PANTOPRAZOLE SODIUM ANHYDROUS
     Indication: Product used for unknown indication
     Route: 065
  58. ATACAND [Suspect]
     Active Substance: CANDESARTAN CILEXETIL
     Indication: Hypertension
     Route: 048
  59. AVAPRO [Concomitant]
     Active Substance: IRBESARTAN
     Indication: Product used for unknown indication
     Route: 065
  60. BISOPROLOL [Suspect]
     Active Substance: BISOPROLOL
     Indication: Product used for unknown indication
  61. BISOPROLOL [Suspect]
     Active Substance: BISOPROLOL
  62. BISOPROLOL [Suspect]
     Active Substance: BISOPROLOL
  63. BISOPROLOL [Suspect]
     Active Substance: BISOPROLOL
  64. BISOPROLOL [Suspect]
     Active Substance: BISOPROLOL
  65. BISOPROLOL [Suspect]
     Active Substance: BISOPROLOL
  66. BISOPROLOL [Suspect]
     Active Substance: BISOPROLOL
  67. CANDESARTAN CILEXETIL [Suspect]
     Active Substance: CANDESARTAN CILEXETIL
     Indication: Product used for unknown indication
     Route: 048
  68. CANDESARTAN CILEXETIL [Suspect]
     Active Substance: CANDESARTAN CILEXETIL
     Route: 048
  69. CANDESARTAN CILEXETIL [Suspect]
     Active Substance: CANDESARTAN CILEXETIL
     Route: 048
  70. CANDESARTAN CILEXETIL [Suspect]
     Active Substance: CANDESARTAN CILEXETIL
     Route: 048
  71. COAL TAR [Concomitant]
     Active Substance: COAL TAR
     Indication: Product used for unknown indication
     Route: 065
  72. COSENTYX [Suspect]
     Active Substance: SECUKINUMAB
     Indication: Psoriatic arthropathy
     Route: 065
  73. COSENTYX [Suspect]
     Active Substance: SECUKINUMAB
     Indication: Psoriasis
     Route: 065
  74. COSENTYX [Suspect]
     Active Substance: SECUKINUMAB
     Indication: Hypertension
     Route: 065
  75. COSENTYX [Suspect]
     Active Substance: SECUKINUMAB
     Route: 065
  76. COSENTYX [Suspect]
     Active Substance: SECUKINUMAB
     Route: 065
  77. COSENTYX [Suspect]
     Active Substance: SECUKINUMAB
     Route: 065
  78. COSENTYX [Suspect]
     Active Substance: SECUKINUMAB
     Route: 065
  79. COSENTYX [Suspect]
     Active Substance: SECUKINUMAB
     Route: 065
  80. COSENTYX [Suspect]
     Active Substance: SECUKINUMAB
     Route: 065
  81. COSENTYX [Suspect]
     Active Substance: SECUKINUMAB
     Route: 065
  82. COSENTYX [Suspect]
     Active Substance: SECUKINUMAB
  83. COSENTYX [Suspect]
     Active Substance: SECUKINUMAB
  84. COSENTYX [Suspect]
     Active Substance: SECUKINUMAB
  85. COSENTYX [Suspect]
     Active Substance: SECUKINUMAB
  86. COSENTYX [Suspect]
     Active Substance: SECUKINUMAB
  87. COSENTYX [Suspect]
     Active Substance: SECUKINUMAB
  88. COSENTYX [Suspect]
     Active Substance: SECUKINUMAB
  89. COSENTYX [Suspect]
     Active Substance: SECUKINUMAB
  90. COSENTYX [Suspect]
     Active Substance: SECUKINUMAB
  91. COSENTYX [Suspect]
     Active Substance: SECUKINUMAB
  92. CYANOCOBALAMIN [Concomitant]
     Active Substance: CYANOCOBALAMIN
     Indication: Product used for unknown indication
     Route: 065
  93. CYMBALTA [Concomitant]
     Active Substance: DULOXETINE HYDROCHLORIDE
     Indication: Product used for unknown indication
     Route: 065
  94. GLICLAZIDE [Suspect]
     Active Substance: GLICLAZIDE
     Indication: Diabetes mellitus
  95. GLICLAZIDE [Suspect]
     Active Substance: GLICLAZIDE
     Indication: Blood pressure measurement
  96. GLICLAZIDE [Suspect]
     Active Substance: GLICLAZIDE
  97. GLICLAZIDE [Suspect]
     Active Substance: GLICLAZIDE
  98. GLICLAZIDE [Suspect]
     Active Substance: GLICLAZIDE
  99. GLICLAZIDE [Suspect]
     Active Substance: GLICLAZIDE
  100. GLICLAZIDE [Suspect]
     Active Substance: GLICLAZIDE
  101. GLICLAZIDE [Suspect]
     Active Substance: GLICLAZIDE
  102. GLICLAZIDE [Suspect]
     Active Substance: GLICLAZIDE
  103. GLICLAZIDE [Suspect]
     Active Substance: GLICLAZIDE
  104. GLICLAZIDE [Suspect]
     Active Substance: GLICLAZIDE
  105. DOMPERIDONE MALEATE [Concomitant]
     Active Substance: DOMPERIDONE MALEATE
     Indication: Product used for unknown indication
  106. DOVONEX [Concomitant]
     Active Substance: CALCIPOTRIENE
     Indication: Product used for unknown indication
  107. LEVOTHYROXINE [Concomitant]
     Active Substance: LEVOTHYROXINE
     Indication: Product used for unknown indication
     Route: 065
  108. ERGOCALCIFEROL [Suspect]
     Active Substance: ERGOCALCIFEROL
     Indication: Product used for unknown indication
     Route: 065
  109. EZETIMIBE [Concomitant]
     Active Substance: EZETIMIBE
     Indication: Product used for unknown indication
  110. GLICLAZIDE [Suspect]
     Active Substance: GLICLAZIDE
     Indication: Blood pressure measurement
     Route: 065
  111. GLICLAZIDE [Suspect]
     Active Substance: GLICLAZIDE
     Indication: Diabetes mellitus
  112. GLICLAZIDE [Suspect]
     Active Substance: GLICLAZIDE
  113. GLICLAZIDE [Suspect]
     Active Substance: GLICLAZIDE
  114. GLICLAZIDE [Suspect]
     Active Substance: GLICLAZIDE
  115. GLICLAZIDE [Suspect]
     Active Substance: GLICLAZIDE
  116. GLICLAZIDE [Suspect]
     Active Substance: GLICLAZIDE
  117. GLICLAZIDE [Suspect]
     Active Substance: GLICLAZIDE
  118. GLICLAZIDE [Suspect]
     Active Substance: GLICLAZIDE
  119. GLICLAZIDE [Suspect]
     Active Substance: GLICLAZIDE
  120. GLUCOPHAGE [Concomitant]
     Active Substance: METFORMIN HYDROCHLORIDE
     Indication: Product used for unknown indication
  121. GRAVOL [Suspect]
     Active Substance: DIMENHYDRINATE
     Indication: Premedication
  122. GRAVOL [Suspect]
     Active Substance: DIMENHYDRINATE
  123. GRAVOL [Suspect]
     Active Substance: DIMENHYDRINATE
  124. HUMALOG [Concomitant]
     Active Substance: INSULIN LISPRO
     Indication: Product used for unknown indication
  125. HYDROCHLOROTHIAZIDE [Concomitant]
     Active Substance: HYDROCHLOROTHIAZIDE
     Indication: Product used for unknown indication
  126. IRBESARTAN [Suspect]
     Active Substance: IRBESARTAN
     Indication: Product used for unknown indication
     Route: 048
  127. JANUVIA [Suspect]
     Active Substance: SITAGLIPTIN PHOSPHATE
     Indication: Product used for unknown indication
     Route: 048
  128. JANUVIA [Suspect]
     Active Substance: SITAGLIPTIN PHOSPHATE
     Route: 048
  129. LANTUS [Concomitant]
     Active Substance: INSULIN GLARGINE
     Indication: Product used for unknown indication
     Route: 058
  130. LEVEMIR [Concomitant]
     Active Substance: INSULIN DETEMIR
     Indication: Product used for unknown indication
     Route: 058
  131. LIPITOR [Suspect]
     Active Substance: ATORVASTATIN CALCIUM
     Indication: Product used for unknown indication
     Route: 048
  132. LIPITOR [Suspect]
     Active Substance: ATORVASTATIN CALCIUM
     Route: 048
  133. LYRICA [Concomitant]
     Active Substance: PREGABALIN
     Indication: Product used for unknown indication
  134. METFORMIN [Suspect]
     Active Substance: METFORMIN HYDROCHLORIDE
     Indication: Product used for unknown indication
  135. METFORMIN [Suspect]
     Active Substance: METFORMIN HYDROCHLORIDE
  136. METFORMIN [Suspect]
     Active Substance: METFORMIN HYDROCHLORIDE
  137. METFORMIN [Suspect]
     Active Substance: METFORMIN HYDROCHLORIDE
  138. METFORMIN [Suspect]
     Active Substance: METFORMIN HYDROCHLORIDE
  139. METFORMIN [Suspect]
     Active Substance: METFORMIN HYDROCHLORIDE
  140. METFORMIN [Suspect]
     Active Substance: METFORMIN HYDROCHLORIDE
  141. METHOTREXATE [Suspect]
     Active Substance: METHOTREXATE
     Indication: Product used for unknown indication
     Route: 037
  142. METHOTREXATE [Suspect]
     Active Substance: METHOTREXATE
  143. METHOTREXATE [Suspect]
     Active Substance: METHOTREXATE
  144. METHOTREXATE [Suspect]
     Active Substance: METHOTREXATE
  145. METHOTREXATE [Suspect]
     Active Substance: METHOTREXATE
  146. METHOTREXATE [Suspect]
     Active Substance: METHOTREXATE
  147. METHOTREXATE [Suspect]
     Active Substance: METHOTREXATE
  148. METHYLPREDNISOLONE ACETATE [Concomitant]
     Active Substance: METHYLPREDNISOLONE ACETATE
     Indication: Product used for unknown indication
  149. ESOMEPRAZOLE [Suspect]
     Active Substance: ESOMEPRAZOLE
     Indication: Product used for unknown indication
     Route: 048
  150. ESOMEPRAZOLE [Suspect]
     Active Substance: ESOMEPRAZOLE
     Route: 048
  151. ESOMEPRAZOLE [Suspect]
     Active Substance: ESOMEPRAZOLE
  152. ESOMEPRAZOLE [Suspect]
     Active Substance: ESOMEPRAZOLE
  153. ESOMEPRAZOLE [Suspect]
     Active Substance: ESOMEPRAZOLE
     Route: 048
  154. ESOMEPRAZOLE [Suspect]
     Active Substance: ESOMEPRAZOLE
     Route: 048
  155. ESOMEPRAZOLE [Suspect]
     Active Substance: ESOMEPRAZOLE
     Route: 048
  156. ESOMEPRAZOLE [Suspect]
     Active Substance: ESOMEPRAZOLE
     Route: 048
  157. ESOMEPRAZOLE [Suspect]
     Active Substance: ESOMEPRAZOLE
     Route: 048
  158. ESOMEPRAZOLE [Suspect]
     Active Substance: ESOMEPRAZOLE
     Route: 048
  159. DIPHENHYDRAMINE HYDROCHLORIDE [Suspect]
     Active Substance: DIPHENHYDRAMINE HYDROCHLORIDE
     Indication: Premedication
     Route: 048
  160. DIPHENHYDRAMINE HYDROCHLORIDE [Suspect]
     Active Substance: DIPHENHYDRAMINE HYDROCHLORIDE
     Route: 048
  161. ACETAMINOPHEN [Suspect]
     Active Substance: ACETAMINOPHEN
     Indication: Arthritis
     Route: 048
  162. ACETAMINOPHEN [Suspect]
     Active Substance: ACETAMINOPHEN
     Route: 048
  163. ACETAMINOPHEN [Suspect]
     Active Substance: ACETAMINOPHEN
     Route: 048
  164. ACETAMINOPHEN [Suspect]
     Active Substance: ACETAMINOPHEN
     Route: 048
  165. METHYLPREDNISOLONE SODIUM SUCCINATE [Suspect]
     Active Substance: METHYLPREDNISOLONE SODIUM SUCCINATE
     Indication: Premedication
     Route: 042
  166. METHYLPREDNISOLONE SODIUM SUCCINATE [Suspect]
     Active Substance: METHYLPREDNISOLONE SODIUM SUCCINATE
     Route: 042
  167. MORPHINE SULFATE [Suspect]
     Active Substance: MORPHINE SULFATE
     Indication: Product used for unknown indication
  168. MORPHINE SULFATE [Suspect]
     Active Substance: MORPHINE SULFATE
  169. MORPHINE SULFATE [Suspect]
     Active Substance: MORPHINE SULFATE
  170. MORPHINE SULFATE [Suspect]
     Active Substance: MORPHINE SULFATE
  171. ONDANSETRON [Suspect]
     Active Substance: ONDANSETRON
     Indication: Product used for unknown indication
  172. ONDANSETRON [Suspect]
     Active Substance: ONDANSETRON
  173. PREDNISOLONE SODIUM PHOSPHATE [Suspect]
     Active Substance: PREDNISOLONE SODIUM PHOSPHATE
     Indication: Product used for unknown indication
  174. PROCHLORPERAZINE [Suspect]
     Active Substance: PROCHLORPERAZINE
     Indication: Vomiting
  175. PROCHLORPERAZINE [Suspect]
     Active Substance: PROCHLORPERAZINE
  176. PROCHLORPERAZINE [Suspect]
     Active Substance: PROCHLORPERAZINE
  177. PROCHLORPERAZINE [Suspect]
     Active Substance: PROCHLORPERAZINE
  178. RITUXIMAB [Suspect]
     Active Substance: RITUXIMAB
     Indication: Rheumatoid arthritis
     Route: 042
  179. RITUXIMAB [Suspect]
     Active Substance: RITUXIMAB
     Indication: Sjogren^s syndrome
     Route: 042
  180. RITUXIMAB [Suspect]
     Active Substance: RITUXIMAB
     Route: 042
  181. RITUXIMAB [Suspect]
     Active Substance: RITUXIMAB
     Route: 042
  182. RITUXIMAB [Suspect]
     Active Substance: RITUXIMAB
     Route: 042
  183. RITUXIMAB [Suspect]
     Active Substance: RITUXIMAB
     Route: 042
  184. ROSUVASTATIN CALCIUM [Concomitant]
     Active Substance: ROSUVASTATIN CALCIUM
     Indication: Product used for unknown indication
     Route: 058
  185. IRBESARTAN [Suspect]
     Active Substance: IRBESARTAN
     Indication: Product used for unknown indication
     Route: 048
  186. IRBESARTAN [Suspect]
     Active Substance: IRBESARTAN
     Route: 048
  187. IRBESARTAN [Suspect]
     Active Substance: IRBESARTAN
     Route: 048
  188. IRBESARTAN [Suspect]
     Active Substance: IRBESARTAN
     Route: 048
  189. IRBESARTAN [Suspect]
     Active Substance: IRBESARTAN
     Route: 048
  190. IRBESARTAN [Suspect]
     Active Substance: IRBESARTAN
     Route: 048
  191. IRBESARTAN [Suspect]
     Active Substance: IRBESARTAN
     Route: 048
  192. IRBESARTAN [Suspect]
     Active Substance: IRBESARTAN
     Route: 048
  193. IRBESARTAN [Suspect]
     Active Substance: IRBESARTAN
     Route: 048
  194. IRBESARTAN [Suspect]
     Active Substance: IRBESARTAN
     Route: 048
  195. IRBESARTAN [Suspect]
     Active Substance: IRBESARTAN
  196. IRBESARTAN [Suspect]
     Active Substance: IRBESARTAN
  197. IRBESARTAN [Suspect]
     Active Substance: IRBESARTAN
  198. IRBESARTAN [Suspect]
     Active Substance: IRBESARTAN
  199. IRBESARTAN [Suspect]
     Active Substance: IRBESARTAN
  200. IRBESARTAN [Suspect]
     Active Substance: IRBESARTAN
  201. IRBESARTAN [Suspect]
     Active Substance: IRBESARTAN
  202. IRBESARTAN [Suspect]
     Active Substance: IRBESARTAN
  203. IRBESARTAN [Suspect]
     Active Substance: IRBESARTAN
  204. IRBESARTAN [Suspect]
     Active Substance: IRBESARTAN
  205. IRBESARTAN [Suspect]
     Active Substance: IRBESARTAN
  206. IRBESARTAN [Suspect]
     Active Substance: IRBESARTAN
  207. STELARA [Concomitant]
     Active Substance: USTEKINUMAB
     Indication: Product used for unknown indication
     Route: 058
  208. SYNTHROID [Suspect]
     Active Substance: LEVOTHYROXINE SODIUM
     Indication: Product used for unknown indication
  209. SYNTHROID [Suspect]
     Active Substance: LEVOTHYROXINE SODIUM
  210. SYNTHROID [Suspect]
     Active Substance: LEVOTHYROXINE SODIUM
  211. TELMISARTAN [Concomitant]
     Active Substance: TELMISARTAN
     Indication: Product used for unknown indication
  212. TYLENOL [Concomitant]
     Active Substance: ACETAMINOPHEN
     Indication: Product used for unknown indication
  213. ZESTRIL [Suspect]
     Active Substance: LISINOPRIL
     Indication: Product used for unknown indication
     Route: 048
  214. ZOLPIDEM [Concomitant]
     Active Substance: ZOLPIDEM TARTRATE
     Indication: Product used for unknown indication
  215. ZOLPIDEM [Concomitant]
     Active Substance: ZOLPIDEM TARTRATE
  216. ZOLPIDEM [Concomitant]
     Active Substance: ZOLPIDEM TARTRATE
  217. ESOMEPRAZOLE MAGNESIUM\NAPROXEN [Suspect]
     Active Substance: ESOMEPRAZOLE MAGNESIUM\NAPROXEN
     Indication: Product used for unknown indication
  218. ESOMEPRAZOLE MAGNESIUM\NAPROXEN [Suspect]
     Active Substance: ESOMEPRAZOLE MAGNESIUM\NAPROXEN
  219. NEXIUM 24HR [Suspect]
     Active Substance: ESOMEPRAZOLE MAGNESIUM
     Indication: Product used for unknown indication
     Route: 048

REACTIONS (53)
  - Angina pectoris [Not Recovered/Not Resolved]
  - Asthenia [Not Recovered/Not Resolved]
  - Affect lability [Not Recovered/Not Resolved]
  - Gangrene [Not Recovered/Not Resolved]
  - Vomiting [Not Recovered/Not Resolved]
  - Eating disorder [Not Recovered/Not Resolved]
  - Adjustment disorder [Not Recovered/Not Resolved]
  - Pain [Not Recovered/Not Resolved]
  - Muscular weakness [Not Recovered/Not Resolved]
  - Muscle spasticity [Not Recovered/Not Resolved]
  - Dysarthria [Not Recovered/Not Resolved]
  - Gastrointestinal disorder [Not Recovered/Not Resolved]
  - Rheumatoid arthritis [Not Recovered/Not Resolved]
  - Coordination abnormal [Not Recovered/Not Resolved]
  - Hemiplegia [Not Recovered/Not Resolved]
  - Influenza like illness [Not Recovered/Not Resolved]
  - Arthritis [Not Recovered/Not Resolved]
  - Sinusitis [Not Recovered/Not Resolved]
  - Cataract [Not Recovered/Not Resolved]
  - Pneumonia [Not Recovered/Not Resolved]
  - Cough [Not Recovered/Not Resolved]
  - Skin exfoliation [Not Recovered/Not Resolved]
  - Rhinorrhoea [Not Recovered/Not Resolved]
  - Blood pressure increased [Not Recovered/Not Resolved]
  - Skin haemorrhage [Not Recovered/Not Resolved]
  - Sinus congestion [Not Recovered/Not Resolved]
  - Sneezing [Not Recovered/Not Resolved]
  - Cerebrovascular accident [Not Recovered/Not Resolved]
  - Palpitations [Not Recovered/Not Resolved]
  - Motor dysfunction [Not Recovered/Not Resolved]
  - Carotid artery thrombosis [Not Recovered/Not Resolved]
  - Cystitis [Not Recovered/Not Resolved]
  - Dysphagia [Not Recovered/Not Resolved]
  - Sinus disorder [Not Recovered/Not Resolved]
  - Anxiety [Not Recovered/Not Resolved]
  - Respiratory tract congestion [Not Recovered/Not Resolved]
  - Aphasia [Not Recovered/Not Resolved]
  - Malaise [Not Recovered/Not Resolved]
  - Fatigue [Not Recovered/Not Resolved]
  - Arterial occlusive disease [Not Recovered/Not Resolved]
  - Hemiparesis [Not Recovered/Not Resolved]
  - Nasopharyngitis [Not Recovered/Not Resolved]
  - Fall [Not Recovered/Not Resolved]
  - Pyrexia [Not Recovered/Not Resolved]
  - Sensory loss [Not Recovered/Not Resolved]
  - Headache [Not Recovered/Not Resolved]
  - Neurologic neglect syndrome [Not Recovered/Not Resolved]
  - Chest discomfort [Not Recovered/Not Resolved]
  - Psoriasis [Not Recovered/Not Resolved]
  - Personality disorder [Not Recovered/Not Resolved]
  - Nausea [Not Recovered/Not Resolved]
  - Influenza [Not Recovered/Not Resolved]
  - Confusional state [Not Recovered/Not Resolved]
